FAERS Safety Report 20076341 (Version 2)
Quarter: 2021Q4

REPORT INFORMATION
  Report Type: Spontaneous
  Country: DE (occurrence: DE)
  Receive Date: 20211116
  Receipt Date: 20211118
  Transmission Date: 20220303
  Serious: Yes (Life-Threatening, Hospitalization, Other)
  Sender: FDA-Public Use
  Company Number: DE-ADRED-07025-01

PATIENT
  Age: 87 Year
  Sex: Male
  Weight: 81 kg

DRUGS (11)
  1. TORSEMIDE [Suspect]
     Active Substance: TORSEMIDE
     Indication: Product used for unknown indication
     Dosage: 5 MILLIGRAM, QD (5 MG, 1-0-0-0, TABLETTEN)
     Route: 048
  2. HYDROCHLOROTHIAZIDE\RAMIPRIL [Suspect]
     Active Substance: HYDROCHLOROTHIAZIDE\RAMIPRIL
     Indication: Product used for unknown indication
     Dosage: 1 DOSAGE FORM, QD (12.5|2.5 MG, 1-0-0-0, TABLETTEN)
     Route: 048
  3. HYDROCORTISONE [Suspect]
     Active Substance: HYDROCORTISONE
     Indication: Product used for unknown indication
     Dosage: 10 MILLIGRAM (10 MG, 2-0-1-0)
     Route: 048
  4. RAMIPRIL [Suspect]
     Active Substance: RAMIPRIL
     Indication: Product used for unknown indication
     Dosage: 5 MILLIGRAM, QD (5 MG, 0-0-1-0, TABLETTEN)
     Route: 048
  5. FLUDROCORTISONE [Suspect]
     Active Substance: FLUDROCORTISONE
     Indication: Product used for unknown indication
     Dosage: 0.1 MILLIGRAM, QD (0.1 MG, 1-0-0-0)
     Route: 048
  6. KALINOR                            /00031402/ [Concomitant]
     Dosage: 600 MILLIGRAM, TID (600 MG, 1-1-1-0, TABLETTEN)
     Route: 048
  7. METOPROLOL [Concomitant]
     Active Substance: METOPROLOL
     Dosage: 47.5 MILLIGRAM, QD (47.5 MG, 1-0-0-0)
     Route: 048
  8. AMLODIPIN                          /00972401/ [Concomitant]
     Dosage: 5 MILLIGRAM, QD (5 MG, 0-0-1-0, TABLETTEN)
     Route: 048
  9. PANTOPRAZOLE [Concomitant]
     Active Substance: PANTOPRAZOLE
     Dosage: 40 MILLIGRAM, QD (40 MG, 1-0-0-0, RETARD-TABLETTEN)
     Route: 048
  10. CITALOPRAM [Concomitant]
     Active Substance: CITALOPRAM HYDROBROMIDE
     Dosage: 10 MILLIGRAM, QD (10 MG, 1-0-0-0)
     Route: 048
  11. PANTHENOL [Concomitant]
     Active Substance: PANTHENOL
     Dosage: 100 MILLIGRAM, TID (100 MG, 1-1-1-0)
     Route: 048

REACTIONS (3)
  - Dehydration [Unknown]
  - General physical health deterioration [Unknown]
  - Hypotension [Unknown]
